FAERS Safety Report 11627888 (Version 1)
Quarter: 2015Q4

REPORT INFORMATION
  Report Type: Spontaneous
  Country: US (occurrence: None)
  Receive Date: 20151013
  Receipt Date: 20151013
  Transmission Date: 20160304
  Serious: Yes (Disabling)
  Sender: FDA-Public Use
  Company Number: None

PATIENT
  Age: 37 Year
  Sex: Female

DRUGS (1)
  1. DEPO-PROVERA [Suspect]
     Active Substance: MEDROXYPROGESTERONE ACETATE
     Dosage: 1 VIAL
     Route: 030
     Dates: start: 20140616

REACTIONS (4)
  - Product contamination [None]
  - Rash erythematous [None]
  - Rash [None]
  - Product quality issue [None]

NARRATIVE: CASE EVENT DATE: 20140715
